FAERS Safety Report 12266369 (Version 1)
Quarter: 2016Q2

REPORT INFORMATION
  Report Type: Spontaneous
  Country: US (occurrence: US)
  Receive Date: 20160413
  Receipt Date: 20160413
  Transmission Date: 20160815
  Serious: Yes (Other)
  Sender: FDA-Public Use
  Company Number: US-AMGEN-USASP2016045227

PATIENT
  Age: 61 Year
  Sex: Female
  Weight: 113.8 kg

DRUGS (10)
  1. DIAZEPAM. [Concomitant]
     Active Substance: DIAZEPAM
     Indication: DEPRESSION
     Dosage: 5MG TABLET BY MOUTH THREE TIMES A DAY
     Route: 048
     Dates: start: 1985
  2. DIAZEPAM. [Concomitant]
     Active Substance: DIAZEPAM
     Indication: STRESS
  3. GLIPIZIDE. [Suspect]
     Active Substance: GLIPIZIDE
     Indication: PRODUCT USED FOR UNKNOWN INDICATION
     Dosage: UNK
     Route: 065
  4. ENBREL [Suspect]
     Active Substance: ETANERCEPT
     Indication: PSORIASIS
     Dosage: UNK
     Route: 065
  5. LYRICA [Suspect]
     Active Substance: PREGABALIN
     Indication: PAIN IN EXTREMITY
     Dosage: 50 MG CAPSULE BY MOUTH EVERY 12 HOURS
     Route: 048
     Dates: start: 20160404, end: 20160406
  6. AMLODIPINE [Concomitant]
     Active Substance: AMLODIPINE BESYLATE
     Dosage: 10 MG TABLET BY MOUTH ONCE A DAY AT NIGHT
     Route: 048
     Dates: start: 2014
  7. GABAPENTIN. [Suspect]
     Active Substance: GABAPENTIN
     Indication: PRODUCT USED FOR UNKNOWN INDICATION
     Dosage: UNK
     Route: 065
  8. CLONIDINE. [Concomitant]
     Active Substance: CLONIDINE
     Indication: HEART DISEASE CONGENITAL
     Dosage: 0.1MG TABLET BY MOUTH ONE TWO TIMES A DAY
     Route: 048
     Dates: start: 2014
  9. METFORMIN [Suspect]
     Active Substance: METFORMIN HYDROCHLORIDE
     Indication: PRODUCT USED FOR UNKNOWN INDICATION
     Dosage: UNK
     Route: 065
  10. BENADRYL [Concomitant]
     Active Substance: DIPHENHYDRAMINE HYDROCHLORIDE
     Dosage: UNK

REACTIONS (11)
  - Blood glucose increased [Unknown]
  - Paraesthesia [Unknown]
  - Immunosuppression [Unknown]
  - Asthma [Unknown]
  - Peripheral swelling [Recovered/Resolved]
  - Pollakiuria [Recovered/Resolved]
  - Pain [Unknown]
  - Pain in extremity [Unknown]
  - Arthritis [Unknown]
  - Bone pain [Unknown]
  - Blister [Recovering/Resolving]

NARRATIVE: CASE EVENT DATE: 2004
